FAERS Safety Report 7047681-4 (Version None)
Quarter: 2010Q4

REPORT INFORMATION
  Report Type: 
  Country: None (occurrence: None)
  Receive Date: 20101015
  Receipt Date: 20101013
  Transmission Date: 20110411
  Serious: Yes (Hospitalization)
  Sender: FDA-Public Use
  Company Number: US-MERCK-1008USA03980

PATIENT
  Age: 49 Year
  Sex: Male
  Weight: 70 kg

DRUGS (8)
  1. ISENTRESS [Suspect]
     Indication: HIV INFECTION
     Route: 048
     Dates: start: 20100624
  2. CELEXA [Concomitant]
     Route: 065
  3. TRUVADA [Concomitant]
     Route: 048
     Dates: start: 20100624
  4. DIFLUCAN [Concomitant]
     Route: 048
     Dates: start: 20100610
  5. FLONASE [Concomitant]
     Route: 055
     Dates: start: 20100610
  6. BACTRIM DS [Concomitant]
     Route: 048
     Dates: start: 20100610
  7. DESYREL [Concomitant]
     Indication: SLEEP DISORDER
     Route: 048
     Dates: start: 20100617
  8. GLUCOPHAGE [Concomitant]
     Route: 048
     Dates: start: 20100610

REACTIONS (8)
  - ANXIETY [None]
  - CHEST PAIN [None]
  - DIARRHOEA [None]
  - DYSPNOEA [None]
  - HALLUCINATION [None]
  - NAUSEA [None]
  - PANIC ATTACK [None]
  - VOMITING [None]
